FAERS Safety Report 25690821 (Version 1)
Quarter: 2025Q3

REPORT INFORMATION
  Report Type: Spontaneous
  Country: US (occurrence: US)
  Receive Date: 20250818
  Receipt Date: 20250818
  Transmission Date: 20251020
  Serious: No
  Sender: BAYER HEALTHCARE LLC
  Company Number: US-BAYER-2025A108224

PATIENT
  Age: 69 Year
  Sex: Male

DRUGS (4)
  1. MIRALAX [Suspect]
     Active Substance: POLYETHYLENE GLYCOL 3350
     Indication: Abdominal distension
     Dates: start: 202501, end: 20250813
  2. MIRALAX [Suspect]
     Active Substance: POLYETHYLENE GLYCOL 3350
     Indication: Bowel movement irregularity
  3. ATORVASTATIN [Concomitant]
     Active Substance: ATORVASTATIN
  4. VALSARTAN [Concomitant]
     Active Substance: VALSARTAN

REACTIONS (4)
  - Product prescribing issue [Unknown]
  - Drug effective for unapproved indication [Unknown]
  - Product use issue [None]
  - Product solubility abnormal [None]

NARRATIVE: CASE EVENT DATE: 20250101
